FAERS Safety Report 25208777 (Version 3)
Quarter: 2025Q2

REPORT INFORMATION
  Report Type: Spontaneous
  Country: US (occurrence: US)
  Receive Date: 20250417
  Receipt Date: 20250606
  Transmission Date: 20250717
  Serious: Yes (Other)
  Sender: BRISTOL-MYERS SQUIBB COMPANY
  Company Number: US-BRISTOL-MYERS SQUIBB COMPANY-2025-048944

PATIENT
  Age: 58 Year
  Sex: Female

DRUGS (1)
  1. REVLIMID [Suspect]
     Active Substance: LENALIDOMIDE
     Indication: Plasma cell myeloma
     Dosage: FREQUENCY: QD 21 DAYS ON AND 7 OFF
     Route: 048

REACTIONS (8)
  - Hypersensitivity [Unknown]
  - Dizziness postural [Unknown]
  - Neoplasm [Unknown]
  - Infection [Unknown]
  - Fatigue [Unknown]
  - Skin discolouration [Unknown]
  - Macule [Unknown]
  - Product distribution issue [Unknown]
